FAERS Safety Report 22158554 (Version 1)
Quarter: 2023Q1

REPORT INFORMATION
  Report Type: Spontaneous
  Country: US (occurrence: US)
  Receive Date: 20230331
  Receipt Date: 20230331
  Transmission Date: 20230417
  Serious: Yes (Other)
  Sender: FDA-Public Use
  Company Number: US-Clinigen Group PLC/ Clinigen Healthcare Ltd-US-CLGN-23-00135

PATIENT
  Age: 16 Year
  Sex: Male

DRUGS (5)
  1. DEXRAZOXANE HYDROCHLORIDE [Suspect]
     Active Substance: DEXRAZOXANE HYDROCHLORIDE
     Indication: Chemotherapy cardiotoxicity attenuation
  2. CYTARABINE [Suspect]
     Active Substance: CYTARABINE
     Indication: Chemotherapy
  3. DAUNORUBICIN [Suspect]
     Active Substance: DAUNORUBICIN
     Indication: Chemotherapy
  4. ETOPOSIDE [Suspect]
     Active Substance: ETOPOSIDE
     Indication: Chemotherapy
  5. ATOVAQUONE [Concomitant]
     Active Substance: ATOVAQUONE
     Indication: Antifungal prophylaxis

REACTIONS (4)
  - Off label use [Unknown]
  - Metabolic disorder [Unknown]
  - Colitis [Recovered/Resolved]
  - Diarrhoea [Recovered/Resolved]
